FAERS Safety Report 20789542 (Version 3)
Quarter: 2022Q2

REPORT INFORMATION
  Report Type: Spontaneous
  Country: AR (occurrence: AR)
  Receive Date: 20220505
  Receipt Date: 20220622
  Transmission Date: 20220721
  Serious: No
  Sender: FDA-Public Use
  Company Number: AR-PFIZER INC-202200558223

PATIENT
  Age: 13 Year
  Sex: Male

DRUGS (1)
  1. GENOTROPIN [Suspect]
     Active Substance: SOMATROPIN
     Indication: Growth hormone deficiency
     Dosage: 0.6 TO 1MG, WEEKLY (6 TIMES PER WEEK)
     Dates: start: 20191001

REACTIONS (2)
  - Device breakage [Not Recovered/Not Resolved]
  - Device power source issue [Not Recovered/Not Resolved]
